FAERS Safety Report 7231638-4 (Version None)
Quarter: 2011Q1

REPORT INFORMATION
  Report Type: 
  Country: None (occurrence: None)
  Receive Date: 20110118
  Receipt Date: 20110113
  Transmission Date: 20110831
  Serious: No
  Sender: FDA-Public Use
  Company Number: US-PFIZER INC-2011009212

PATIENT
  Sex: Female
  Weight: 52.154 kg

DRUGS (5)
  1. CLONAZEPAM [Concomitant]
     Indication: SLEEP DISORDER
     Dosage: UNK
  2. LEXAPRO [Concomitant]
     Indication: DEPRESSION
     Dosage: UNK
  3. WELLBUTRIN [Concomitant]
     Dosage: UNK
  4. GEODON [Suspect]
     Indication: MANIA
  5. GEODON [Suspect]
     Indication: BIPOLAR DISORDER
     Dosage: 80 MG, DAILY
     Route: 048
     Dates: start: 20101001

REACTIONS (1)
  - DIZZINESS [None]
